FAERS Safety Report 6883151-1 (Version None)
Quarter: 2010Q3

REPORT INFORMATION
  Report Type: 
  Country: None (occurrence: None)
  Receive Date: 20100727
  Receipt Date: 20100719
  Transmission Date: 20110219
  Serious: Yes (Hospitalization)
  Sender: FDA-Public Use
  Company Number: 015586

PATIENT
  Sex: Male
  Weight: 57 kg

DRUGS (6)
  1. CERTOLIZUMAB (CDP870) [Suspect]
     Indication: RHEUMATOID ARTHRITIS
     Dosage: SEE IMAGE
     Route: 058
     Dates: start: 20060608, end: 20070719
  2. CERTOLIZUMAB (CDP870) [Suspect]
     Indication: RHEUMATOID ARTHRITIS
     Dosage: SEE IMAGE
     Route: 058
     Dates: start: 20070816, end: 20100715
  3. CERTOLIZUMAB (CDP870) [Suspect]
     Indication: RHEUMATOID ARTHRITIS
     Dosage: SEE IMAGE
     Route: 058
     Dates: start: 20051222
  4. METHOTREXATE [Concomitant]
  5. DICLOFENAC SODIUM [Concomitant]
  6. ENALAPRIL MALEATE [Concomitant]

REACTIONS (1)
  - PEPTIC ULCER [None]
